FAERS Safety Report 8224567-0 (Version None)
Quarter: 2012Q1

REPORT INFORMATION
  Report Type: 
  Country: None (occurrence: None)
  Receive Date: 20120321
  Receipt Date: 20120315
  Transmission Date: 20120608
  Serious: Yes (Other)
  Sender: FDA-Public Use
  Company Number: US-BAYER-200940444NA

PATIENT
  Age: 77 Year
  Sex: Female
  Weight: 53.515 kg

DRUGS (20)
  1. TRASYLOL [Suspect]
     Indication: CORONARY ARTERY BYPASS
     Dosage: 100 CC PUMP PRIME
     Route: 042
     Dates: start: 20020429
  2. HUMULIN N [Concomitant]
     Dosage: 12 UNITS EVERY
     Route: 058
  3. LASIX [Concomitant]
     Dosage: 20 MG, QD
     Route: 048
  4. NITROSTAT [Concomitant]
     Dosage: 0.4 MG AS NEEDED
     Route: 060
  5. HUMULIN N [Concomitant]
     Dosage: 10 UNITS EVERY EVENING
     Route: 058
  6. HEPARIN [Concomitant]
     Dosage: UNK
     Dates: start: 20020429
  7. RED BLOOD CELLS [Concomitant]
     Dosage: 5 U, UNK
     Route: 042
     Dates: start: 20020429
  8. SYNTHROID [Concomitant]
     Dosage: 0.88 MG, QD
     Route: 048
  9. NORVASC [Concomitant]
     Dosage: 5 MG, QD
     Route: 048
  10. PROTAMINE SULFATE [Concomitant]
     Dosage: UNK
     Dates: start: 20020429
  11. ZOFRAN [Concomitant]
     Dosage: UNK
     Dates: start: 20020429
  12. REGLAN [Concomitant]
     Dosage: UNK
     Dates: start: 20020429
  13. CRYOPRECIPITATES [Concomitant]
     Dosage: 10 U, UNK
     Route: 042
     Dates: start: 20020429
  14. LANOXIN [Concomitant]
     Dosage: 0.125 MG, QD
     Route: 048
  15. PLATELETS [Concomitant]
     Dosage: 30 U, UNK
     Route: 042
     Dates: start: 20020429
  16. PRAVACHOL [Concomitant]
     Dosage: 0 MG, QD
     Route: 048
  17. ASPIRIN [Concomitant]
     Route: 048
  18. NIPRIDE [Concomitant]
     Dosage: UNK
     Dates: start: 20020429
  19. CARDIZEM [Concomitant]
     Dosage: UNK
     Dates: start: 20020429
  20. PLASMA [Concomitant]
     Dosage: 4 U, UNK
     Route: 042
     Dates: start: 20020429

REACTIONS (11)
  - RENAL INJURY [None]
  - INJURY [None]
  - RENAL FAILURE [None]
  - STRESS [None]
  - FEAR [None]
  - PAIN [None]
  - RENAL IMPAIRMENT [None]
  - UNEVALUABLE EVENT [None]
  - EMOTIONAL DISTRESS [None]
  - ANXIETY [None]
  - ANHEDONIA [None]
